FAERS Safety Report 10215137 (Version 1)
Quarter: 2014Q2

REPORT INFORMATION
  Report Type: Spontaneous
  Country: FR (occurrence: FR)
  Receive Date: 20140603
  Receipt Date: 20140603
  Transmission Date: 20141212
  Serious: Yes (Death)
  Sender: FDA-Public Use
  Company Number: FR-BIOMARINAP-FR-2014-103383

PATIENT
  Sex: Male

DRUGS (1)
  1. KUVAN [Suspect]
     Indication: PHENYLKETONURIA
     Dosage: 6.7 MG/KG, QD

REACTIONS (2)
  - Potter^s syndrome [Fatal]
  - Foetal exposure during pregnancy [Unknown]
